FAERS Safety Report 6579326-1 (Version None)
Quarter: 2010Q1

REPORT INFORMATION
  Report Type: 
  Country: None (occurrence: None)
  Receive Date: 20100203
  Receipt Date: 20100120
  Transmission Date: 20100710
  Serious: Yes (Death)
  Sender: FDA-Public Use
  Company Number: A-NJ2010-33401

PATIENT
  Age: 65 Year
  Sex: Male

DRUGS (2)
  1. TRACLEER [Suspect]
     Indication: PULMONARY ARTERIAL HYPERTENSION
     Dosage: ORAL
     Route: 048
     Dates: start: 20070511, end: 20100109
  2. WARFARIN SODIUM [Concomitant]

REACTIONS (1)
  - ROAD TRAFFIC ACCIDENT [None]
